FAERS Safety Report 26032779 (Version 2)
Quarter: 2025Q4

REPORT INFORMATION
  Report Type: Spontaneous
  Country: EU (occurrence: EU)
  Receive Date: 20251112
  Receipt Date: 20251117
  Transmission Date: 20260118
  Serious: Yes (Hospitalization)
  Sender: ROCHE
  Company Number: EU-ROCHE-10000214258

PATIENT
  Age: 29 Year
  Sex: Male

DRUGS (39)
  1. POLATUZUMAB VEDOTIN [Suspect]
     Active Substance: POLATUZUMAB VEDOTIN
     Indication: Diffuse large B-cell lymphoma
     Route: 065
     Dates: start: 20241112
  2. POLATUZUMAB VEDOTIN [Suspect]
     Active Substance: POLATUZUMAB VEDOTIN
     Route: 042
     Dates: start: 20241230
  3. MABTHERA [Suspect]
     Active Substance: RITUXIMAB
     Indication: Diffuse large B-cell lymphoma
     Route: 065
     Dates: start: 20241112
  4. MABTHERA [Suspect]
     Active Substance: RITUXIMAB
     Route: 042
     Dates: start: 20241231
  5. CYCLOPHOSPHAMIDE [Suspect]
     Active Substance: CYCLOPHOSPHAMIDE
     Indication: Diffuse large B-cell lymphoma
     Route: 065
     Dates: start: 20241112
  6. CYCLOPHOSPHAMIDE [Suspect]
     Active Substance: CYCLOPHOSPHAMIDE
     Route: 042
     Dates: start: 20250130
  7. DOXORUBICIN [Suspect]
     Active Substance: DOXORUBICIN
     Indication: Diffuse large B-cell lymphoma
     Route: 065
     Dates: start: 20241112
  8. DOXORUBICIN [Suspect]
     Active Substance: DOXORUBICIN
     Route: 042
     Dates: start: 20241230
  9. PREDNISONE [Suspect]
     Active Substance: PREDNISONE
     Indication: Diffuse large B-cell lymphoma
     Route: 065
     Dates: start: 20241112
  10. PREDNISONE [Suspect]
     Active Substance: PREDNISONE
     Route: 048
     Dates: start: 20250130
  11. PANTOPRAZOLE [Concomitant]
     Active Substance: PANTOPRAZOLE
     Route: 048
     Dates: start: 20241112
  12. NYSTATIN [Concomitant]
     Active Substance: NYSTATIN
     Dosage: DAILY DOSE 15 ML
     Route: 048
     Dates: start: 20241112
  13. ENOXAPARIN [Concomitant]
     Active Substance: ENOXAPARIN
     Route: 058
     Dates: start: 20241112
  14. contrimoxazole [Concomitant]
     Dosage: 160/180 MG
     Route: 048
     Dates: start: 20241112
  15. ACYCLOVIR [Concomitant]
     Active Substance: ACYCLOVIR
     Dosage: DAILY DOSE 800 MG
     Route: 048
     Dates: start: 20241112
  16. POTASSIUM CHLORIDE [Concomitant]
     Active Substance: POTASSIUM CHLORIDE
     Route: 048
     Dates: start: 20241112
  17. ACETYLCYSTEINE [Concomitant]
     Active Substance: ACETYLCYSTEINE
     Route: 048
     Dates: start: 20241112
  18. ONDANSETRON [Concomitant]
     Active Substance: ONDANSETRON
     Route: 048
     Dates: start: 20241112
  19. POLYETHYLENE GLYCOLS [Concomitant]
     Active Substance: POLYETHYLENE GLYCOLS
     Route: 048
     Dates: start: 20241112
  20. PREDNISONE [Concomitant]
     Active Substance: PREDNISONE
     Route: 048
     Dates: start: 20241104
  21. PREDNISONE [Concomitant]
     Active Substance: PREDNISONE
     Dates: start: 20241112
  22. HYDROCORTISONE [Concomitant]
     Active Substance: HYDROCORTISONE
     Dates: start: 20241112, end: 20241113
  23. CHLORPHENIRAMINE MALEATE [Concomitant]
     Active Substance: CHLORPHENIRAMINE MALEATE
     Dates: start: 20241112, end: 20241113
  24. ACETAMINOPHEN [Concomitant]
     Active Substance: ACETAMINOPHEN
     Dates: start: 20241112, end: 20241113
  25. ACETAMINOPHEN [Concomitant]
     Active Substance: ACETAMINOPHEN
     Dates: start: 20241204, end: 20241205
  26. METOPROLOL [Concomitant]
     Active Substance: METOPROLOL
     Dates: start: 20241112, end: 20241113
  27. METOPROLOL [Concomitant]
     Active Substance: METOPROLOL
     Dates: start: 20241122, end: 20241123
  28. METOPROLOL [Concomitant]
     Active Substance: METOPROLOL
     Dates: start: 20241122, end: 20241214
  29. MEROPENEM [Concomitant]
     Active Substance: MEROPENEM
     Dates: start: 20241112, end: 20241122
  30. MEROPENEM [Concomitant]
     Active Substance: MEROPENEM
     Dates: start: 20241122, end: 20241128
  31. MEROPENEM [Concomitant]
     Active Substance: MEROPENEM
     Dates: start: 20241205, end: 20241220
  32. VANCOMYCIN [Concomitant]
     Active Substance: VANCOMYCIN
     Dates: start: 20241112, end: 20241122
  33. CASPOFUNGIN [Concomitant]
     Active Substance: CASPOFUNGIN
     Dates: start: 20240920, end: 20240921
  34. CASPOFUNGIN [Concomitant]
     Active Substance: CASPOFUNGIN
     Dates: start: 20241122, end: 20241125
  35. LINEZOLID [Concomitant]
     Active Substance: LINEZOLID
     Dates: start: 20241122, end: 20241202
  36. LINEZOLID [Concomitant]
     Active Substance: LINEZOLID
     Dates: start: 20241205, end: 20241220
  37. AMPHOTERICIN B [Concomitant]
     Active Substance: AMPHOTERICIN B
     Dates: start: 20241125, end: 20241214
  38. SPIRONOLACTONE [Concomitant]
     Active Substance: SPIRONOLACTONE
     Dates: start: 20241212, end: 20241220
  39. POTASSIUM CHLORIDE [Concomitant]
     Active Substance: POTASSIUM CHLORIDE
     Dosage: 3 VIALS IN 500 ML OF SALINE SOLUTION
     Dates: start: 20241211, end: 20241214

REACTIONS (1)
  - Neutropenia [Recovered/Resolved]

NARRATIVE: CASE EVENT DATE: 20250131
